FAERS Safety Report 24413104 (Version 1)
Quarter: 2024Q4

REPORT INFORMATION
  Report Type: Spontaneous
  Country: FR (occurrence: FR)
  Receive Date: 20241008
  Receipt Date: 20241008
  Transmission Date: 20250115
  Serious: Yes (Hospitalization)
  Sender: NOVARTIS
  Company Number: None

PATIENT
  Age: 5 Year
  Sex: Female

DRUGS (1)
  1. TRAMETINIB [Suspect]
     Active Substance: TRAMETINIB
     Indication: Astrocytoma
     Dosage: 0.44 MG, QD
     Route: 048
     Dates: start: 20220224

REACTIONS (2)
  - Haematemesis [Unknown]
  - Melaena [Unknown]

NARRATIVE: CASE EVENT DATE: 20220803
